FAERS Safety Report 11540480 (Version 1)
Quarter: 2015Q3

REPORT INFORMATION
  Report Type: Spontaneous
  Country: US (occurrence: US)
  Receive Date: 20150923
  Receipt Date: 20150923
  Transmission Date: 20151125
  Serious: No
  Sender: FDA-Public Use
  Company Number: US-BEH-2015047692

PATIENT
  Sex: Female
  Weight: 68 kg

DRUGS (37)
  1. ALBUTEROL. [Concomitant]
     Active Substance: ALBUTEROL
     Route: 055
  2. PRIVIGEN [Suspect]
     Active Substance: HUMAN IMMUNOGLOBULIN G
     Dosage: 10 G VIALS
     Route: 042
  3. ACIDOPHILUS [Concomitant]
     Active Substance: LACTOBACILLUS ACIDOPHILUS
  4. BONE MEAL VITAMIN D [Concomitant]
  5. PRIVIGEN [Suspect]
     Active Substance: HUMAN IMMUNOGLOBULIN G
     Route: 042
  6. VITAMIN D3 [Concomitant]
     Active Substance: CHOLECALCIFEROL
  7. GARLIC. [Concomitant]
     Active Substance: GARLIC
  8. LEXAPRO [Concomitant]
     Active Substance: ESCITALOPRAM OXALATE
  9. PRIVIGEN [Suspect]
     Active Substance: HUMAN IMMUNOGLOBULIN G
     Route: 042
  10. DOXYCYCLINE. [Concomitant]
     Active Substance: DOXYCYCLINE
  11. ZYRTEC [Concomitant]
     Active Substance: CETIRIZINE HYDROCHLORIDE
  12. EQL B COMPLEX [Concomitant]
     Dosage: 100
  13. POTASSIUM [Concomitant]
     Active Substance: POTASSIUM
  14. ACETAMINOPHEN. [Concomitant]
     Active Substance: ACETAMINOPHEN
  15. DIPHENHYDRAMINE. [Concomitant]
     Active Substance: DIPHENHYDRAMINE
  16. ASPIRIN. [Concomitant]
     Active Substance: ASPIRIN
  17. ADVAIR HFA [Concomitant]
     Active Substance: FLUTICASONE PROPIONATE\SALMETEROL XINAFOATE
     Dosage: 250-50
  18. PRIVIGEN [Suspect]
     Active Substance: HUMAN IMMUNOGLOBULIN G
     Route: 042
  19. PRIVIGEN [Suspect]
     Active Substance: HUMAN IMMUNOGLOBULIN G
     Dosage: 20 G VIALS
     Route: 042
  20. MUCINEX ER [Concomitant]
  21. KLONOPIN [Concomitant]
     Active Substance: CLONAZEPAM
  22. PRIVIGEN [Suspect]
     Active Substance: HUMAN IMMUNOGLOBULIN G
     Indication: IMMUNODEFICIENCY COMMON VARIABLE
     Route: 042
  23. PREDNISONE. [Concomitant]
     Active Substance: PREDNISONE
  24. SYNTHROID [Concomitant]
     Active Substance: LEVOTHYROXINE SODIUM
  25. OMEPRAZOLE. [Concomitant]
     Active Substance: OMEPRAZOLE
  26. COENZYME Q10 [Concomitant]
     Active Substance: UBIDECARENONE
  27. EPIPEN [Concomitant]
     Active Substance: EPINEPHRINE
  28. PRIVIGEN [Suspect]
     Active Substance: HUMAN IMMUNOGLOBULIN G
     Route: 042
  29. COD LIVER OIL [Concomitant]
     Active Substance: COD LIVER OIL
  30. PRESERVISION [Concomitant]
     Active Substance: MINERALS\VITAMINS
  31. CULTURELLE [Concomitant]
     Active Substance: LACTOBACILLUS RHAMNOSUS
  32. SODIUM CHLORIDE. [Concomitant]
     Active Substance: SODIUM CHLORIDE
  33. XOPENEX HFA [Concomitant]
     Active Substance: LEVALBUTEROL TARTRATE
  34. CALCIUM-MAGNESIUM-ZINC [Concomitant]
  35. CRANBERRY. [Concomitant]
     Active Substance: CRANBERRY
  36. VITAMIN B12 [Concomitant]
     Active Substance: CYANOCOBALAMIN
  37. SPIRIVA [Concomitant]
     Active Substance: TIOTROPIUM BROMIDE MONOHYDRATE

REACTIONS (2)
  - Upper respiratory tract infection [Unknown]
  - Bronchitis [Unknown]
